FAERS Safety Report 15729516 (Version 2)
Quarter: 2018Q4

REPORT INFORMATION
  Report Type: Spontaneous
  Country: US (occurrence: US)
  Receive Date: 20181217
  Receipt Date: 20181221
  Transmission Date: 20190205
  Serious: Yes (Hospitalization)
  Sender: FDA-Public Use
  Company Number: US-INCYTE CORPORATION-2018IN012696

PATIENT

DRUGS (2)
  1. JAKAFI [Suspect]
     Active Substance: RUXOLITINIB
     Dosage: 5 MG (MWFSAT)/ 10 MG (T,TH,SUN)
     Route: 048
  2. JAKAFI [Suspect]
     Active Substance: RUXOLITINIB
     Indication: MYELOPROLIFERATIVE NEOPLASM
     Dosage: 5 MG (1 TAB) MWFSUN, 10 MG (2 5 MG TABS) TTHSUN
     Route: 048
     Dates: start: 201607

REACTIONS (5)
  - Rash [Unknown]
  - Lower limb fracture [Unknown]
  - Haemoglobin decreased [Unknown]
  - Inappropriate schedule of product administration [Unknown]
  - Off label use [Unknown]

NARRATIVE: CASE EVENT DATE: 201607
